FAERS Safety Report 8000628 (Version 2)
Quarter: 2017Q1

REPORT INFORMATION
  Report Type: Spontaneous
  Country: US (occurrence: US)
  Receive Date: 20110621
  Receipt Date: 20170215
  Transmission Date: 20170429
  Serious: No
  Sender: FDA-Public Use
  Company Number: US-ASTRAZENECA-2010SE36993

PATIENT
  Age: 60 Year
  Sex: Male
  Weight: 88.5 kg

DRUGS (2)
  1. PULMICORT FLEXHALER [Suspect]
     Active Substance: BUDESONIDE
     Indication: ASTHMA
     Route: 055
     Dates: start: 2012
  2. FLUCANOL [Concomitant]
     Indication: CANDIDA INFECTION

REACTIONS (13)
  - Oral candidiasis [Recovering/Resolving]
  - Amnesia [Unknown]
  - Chest injury [Unknown]
  - Cough [Unknown]
  - Choking [Unknown]
  - Fall [Unknown]
  - Joint injury [Unknown]
  - Off label use [Unknown]
  - Concussion [Unknown]
  - Headache [Not Recovered/Not Resolved]
  - Vision blurred [Not Recovered/Not Resolved]
  - Dysphagia [Unknown]
  - Limb injury [Unknown]

NARRATIVE: CASE EVENT DATE: 2012
